FAERS Safety Report 20762556 (Version 3)
Quarter: 2022Q2

REPORT INFORMATION
  Report Type: Spontaneous
  Country: US (occurrence: None)
  Receive Date: 20220428
  Receipt Date: 20220616
  Transmission Date: 20220720
  Serious: No
  Sender: FDA-Public Use
  Company Number: 2022A164646

PATIENT
  Age: 25450 Day
  Sex: Male

DRUGS (1)
  1. BYDUREON BCISE [Suspect]
     Active Substance: EXENATIDE
     Dosage: 2.0MG UNKNOWN
     Route: 058
     Dates: start: 202204

REACTIONS (4)
  - Injury associated with device [Recovered/Resolved]
  - Incorrect dose administered by device [Not Recovered/Not Resolved]
  - Device delivery system issue [Unknown]
  - Device use issue [Unknown]

NARRATIVE: CASE EVENT DATE: 20220425
